FAERS Safety Report 6433626-4 (Version None)
Quarter: 2009Q4

REPORT INFORMATION
  Report Type: 
  Country: None (occurrence: None)
  Receive Date: 20091110
  Receipt Date: 20091027
  Transmission Date: 20100525
  Serious: No
  Sender: FDA-Public Use
  Company Number: US-JNJFOC-20091009071

PATIENT
  Sex: Female
  Weight: 86.18 kg

DRUGS (4)
  1. DURAGESIC-100 [Suspect]
     Indication: OSTEOMYELITIS
     Route: 062
  2. DURAGESIC-100 [Suspect]
     Route: 062
     Dates: start: 20060101, end: 20091001
  3. DILAUDID [Concomitant]
     Indication: PAIN
     Route: 048
  4. METHADONE [Concomitant]
     Indication: PAIN
     Route: 048

REACTIONS (2)
  - INADEQUATE ANALGESIA [None]
  - INAPPROPRIATE SCHEDULE OF DRUG ADMINISTRATION [None]
